FAERS Safety Report 21604943 (Version 1)
Quarter: 2022Q4

REPORT INFORMATION
  Report Type: Spontaneous
  Country: CA (occurrence: CA)
  Receive Date: 20221116
  Receipt Date: 20221116
  Transmission Date: 20230113
  Serious: Yes (Hospitalization)
  Sender: FDA-Public Use
  Company Number: CA-PFIZER INC-202201300584

PATIENT
  Age: 76 Year
  Sex: Female

DRUGS (1)
  1. RUXIENCE [Suspect]
     Active Substance: RITUXIMAB-PVVR
     Indication: Rheumatoid arthritis
     Dosage: 1000 MG, DAY 1 AND 15
     Route: 042
     Dates: start: 20221031

REACTIONS (3)
  - Gastrointestinal haemorrhage [Unknown]
  - Vertigo [Unknown]
  - Retching [Unknown]

NARRATIVE: CASE EVENT DATE: 20221101
